FAERS Safety Report 5736706-1 (Version None)
Quarter: 2008Q2

REPORT INFORMATION
  Report Type: 
  Country: None (occurrence: None)
  Receive Date: 20080508
  Receipt Date: 20080429
  Transmission Date: 20081010
  Serious: Yes (Life-Threatening, Hospitalization)
  Sender: FDA-Public Use
  Company Number: 107#03#2008-02459

PATIENT
  Age: 34 Year
  Sex: Male

DRUGS (2)
  1. MIRTAZAPINE [Suspect]
     Indication: DEPRESSION
     Dosage: 15 MG
     Dates: start: 20080414, end: 20080417
  2. AMITRIPTLINE HCL [Suspect]
     Indication: PAIN IN EXTREMITY
     Dosage: 10 MG
     Dates: start: 20080403, end: 20080413

REACTIONS (3)
  - CONVULSION [None]
  - IRRITABILITY [None]
  - SUICIDAL IDEATION [None]
